FAERS Safety Report 8127840-X (Version None)
Quarter: 2012Q1

REPORT INFORMATION
  Report Type: 
  Country: None (occurrence: None)
  Receive Date: 20120210
  Receipt Date: 20110801
  Transmission Date: 20120608
  Serious: No
  Sender: FDA-Public Use
  Company Number: US-GLAXOSMITHKLINE-A0939275A

PATIENT
  Age: 49 Year
  Sex: Female

DRUGS (4)
  1. DEXTROSTAT [Concomitant]
  2. PAXIL [Suspect]
     Indication: GENERALISED ANXIETY DISORDER
     Dosage: 20MG PER DAY
     Route: 048
     Dates: start: 20090301, end: 20110601
  3. CLONAZEPAM [Concomitant]
  4. NEXIUM [Concomitant]

REACTIONS (9)
  - WEIGHT INCREASED [None]
  - MEMORY IMPAIRMENT [None]
  - DEREALISATION [None]
  - DRUG INEFFECTIVE [None]
  - ANGER [None]
  - CONFUSIONAL STATE [None]
  - WITHDRAWAL SYNDROME [None]
  - ABNORMAL BEHAVIOUR [None]
  - CRYING [None]
